FAERS Safety Report 10443963 (Version 1)
Quarter: 2014Q3

REPORT INFORMATION
  Report Type: Spontaneous
  Country: US (occurrence: US)
  Receive Date: 20140910
  Receipt Date: 20140910
  Transmission Date: 20150326
  Serious: No
  Sender: FDA-Public Use
  Company Number: US-TARO-2014P1001700

PATIENT
  Age: 68 Year
  Sex: Female
  Weight: 57.15 kg

DRUGS (3)
  1. WARFARIN SODIUM TABLETS USP 4MG [Suspect]
     Active Substance: WARFARIN SODIUM
     Indication: PULMONARY EMBOLISM
     Route: 048
     Dates: start: 20140220
  2. WARFARIN SODIUM TABLETS USP 5MG [Suspect]
     Active Substance: WARFARIN SODIUM
     Indication: PULMONARY EMBOLISM
     Route: 048
     Dates: start: 20140127, end: 20140219
  3. WARFARIN SODIUM TABLETS USP 4MG [Suspect]
     Active Substance: WARFARIN SODIUM
     Dosage: QOD
     Route: 048
     Dates: start: 20140224

REACTIONS (8)
  - Swelling face [Not Recovered/Not Resolved]
  - Joint range of motion decreased [Unknown]
  - Sinus disorder [Recovering/Resolving]
  - Ocular icterus [Recovered/Resolved]
  - Eye pruritus [Not Recovered/Not Resolved]
  - Epistaxis [Recovering/Resolving]
  - Eye swelling [Recovering/Resolving]
  - Musculoskeletal pain [Not Recovered/Not Resolved]

NARRATIVE: CASE EVENT DATE: 20140221
